FAERS Safety Report 9415163 (Version 1)
Quarter: 2013Q3

REPORT INFORMATION
  Report Type: Spontaneous
  Country: DE (occurrence: DE)
  Receive Date: 20130723
  Receipt Date: 20130723
  Transmission Date: 20140515
  Serious: Yes (Death, Other)
  Sender: FDA-Public Use
  Company Number: DE-SPECTRUM PHARMACEUTICALS, INC.-13-F-US-00207

PATIENT
  Sex: 0

DRUGS (8)
  1. FLUOROURACIL [Suspect]
     Indication: OESOPHAGEAL ADENOCARCINOMA
     Dosage: 200 MG/M2, D1-D21, QD21
     Route: 042
  2. FLUOROURACIL [Suspect]
     Dosage: 2600 MG/M2, D1
     Route: 042
  3. OXALIPLATIN [Suspect]
     Indication: OESOPHAGEAL ADENOCARCINOMA
     Dosage: 85 MG/M2, D1, QD14
     Route: 065
  4. DOCETAXEL [Suspect]
     Indication: OESOPHAGEAL ADENOCARCINOMA
     Dosage: 50 MG/M2, D1
     Route: 065
  5. EPIRUBICIN [Suspect]
     Indication: OESOPHAGEAL ADENOCARCINOMA
     Dosage: 50 MG/M2, D1
     Route: 065
  6. CISPLATIN [Suspect]
     Indication: OESOPHAGEAL ADENOCARCINOMA
     Dosage: 60 MG/M2, D1
     Route: 065
  7. LEUCOVORIN /00566701/ [Suspect]
     Indication: OESOPHAGEAL ADENOCARCINOMA
     Dosage: 200 MG/M2, D1
     Route: 065
  8. CAPECITABINE [Suspect]
     Indication: OESOPHAGEAL ADENOCARCINOMA
     Dosage: UNK
     Route: 065

REACTIONS (4)
  - Death [Fatal]
  - Toxicity to various agents [Fatal]
  - Thrombosis [Unknown]
  - Neutropenia [Unknown]
